FAERS Safety Report 9107857 (Version 1)
Quarter: 2013Q1

REPORT INFORMATION
  Report Type: Spontaneous
  Country: US (occurrence: US)
  Receive Date: 20130221
  Receipt Date: 20130221
  Transmission Date: 20140127
  Serious: No
  Sender: FDA-Public Use
  Company Number: US-PFIZER INC-2013061535

PATIENT
  Age: 30 Year
  Sex: Female
  Weight: 53.5 kg

DRUGS (1)
  1. DEPO-PROVERA [Suspect]
     Indication: CONTRACEPTION
     Dosage: UNK
     Dates: start: 2012

REACTIONS (1)
  - Dysfunctional uterine bleeding [Not Recovered/Not Resolved]
